FAERS Safety Report 4976880-8 (Version None)
Quarter: 2006Q2

REPORT INFORMATION
  Report Type: 
  Country: None (occurrence: None)
  Receive Date: 20060413
  Receipt Date: 20060404
  Transmission Date: 20061013
  Serious: Yes (Congenital Anomaly)
  Sender: FDA-Public Use
  Company Number: 2006046760

PATIENT

DRUGS (2)
  1. VIRACEPT [Suspect]
     Indication: HIV TEST POSITIVE
     Dosage: 2500 MG ORAL
     Route: 048
     Dates: end: 20060115
  2. TRUVADA [Suspect]
     Indication: HIV TEST POSITIVE
     Dosage: 1 TABLET, ORAL
     Route: 048
     Dates: end: 20060115

REACTIONS (2)
  - DRUG EXPOSURE DURING PREGNANCY [None]
  - PREGNANCY [None]
